FAERS Safety Report 22163998 (Version 1)
Quarter: 2023Q2

REPORT INFORMATION
  Report Type: Report from Study
  Country: CN (occurrence: CN)
  Receive Date: 20230402
  Receipt Date: 20230402
  Transmission Date: 20230721
  Serious: Yes (Other)
  Sender: FDA-Public Use
  Company Number: CN-JNJFOC-20230359192

PATIENT

DRUGS (5)
  1. RISPERDAL [Suspect]
     Active Substance: RISPERIDONE
     Indication: Product used for unknown indication
     Route: 048
  2. RISPERDAL CONSTA [Suspect]
     Active Substance: RISPERIDONE
     Indication: Product used for unknown indication
     Route: 030
  3. RISPERDAL CONSTA [Suspect]
     Active Substance: RISPERIDONE
     Route: 058
  4. RISPERDAL CONSTA [Suspect]
     Active Substance: RISPERIDONE
  5. RISPERDAL CONSTA [Suspect]
     Active Substance: RISPERIDONE

REACTIONS (54)
  - Ketosis-prone diabetes mellitus [Unknown]
  - Trifascicular block [Unknown]
  - Diabetes with hyperosmolarity [Unknown]
  - Hyperprolactinaemia [Unknown]
  - Endocarditis fibroplastica [Unknown]
  - Portal vein cavernous transformation [Unknown]
  - Wellens^ syndrome [Unknown]
  - Target skin lesion [Unknown]
  - Hypotonic urinary bladder [Unknown]
  - Malignant catatonia [Unknown]
  - Progressive supranuclear palsy [Unknown]
  - Gynaecomastia [Unknown]
  - Pseudogynaecomastia [Unknown]
  - Body mass index increased [Unknown]
  - Galactorrhoea [Unknown]
  - Manganese decreased [Unknown]
  - Emotional disorder [Unknown]
  - Neutrophil count [Unknown]
  - Obesity [Unknown]
  - Exposure to contaminated device [Unknown]
  - Extrapyramidal disorder [Unknown]
  - Rabbit syndrome [Unknown]
  - Blood prolactin increased [Unknown]
  - Breast enlargement [Unknown]
  - Breast discharge [Unknown]
  - Homosexuality [Unknown]
  - Inferiority complex [Unknown]
  - Microsleep [Unknown]
  - Breast disorder male [Unknown]
  - Cardiomyopathy alcoholic [Unknown]
  - Gender dysphoria [Unknown]
  - Spasmodic dysphonia [Unknown]
  - Acrophobia [Unknown]
  - Nipple swelling [Unknown]
  - Adjusted calcium increased [Unknown]
  - Body mass index increased [Unknown]
  - Somatic symptom disorder of pregnancy [Unknown]
  - Cogwheel rigidity [Unknown]
  - Acanthosis nigricans [Unknown]
  - Xanthoma [Unknown]
  - Waxy flexibility [Unknown]
  - Retracted nipple [Unknown]
  - Injury [Unknown]
  - Pleurothotonus [Unknown]
  - Nipple enlargement [Unknown]
  - Protrusion tongue [Unknown]
  - Morose [Unknown]
  - Tongue thrust [Unknown]
  - Sexual dysfunction [Unknown]
  - Increased appetite [Unknown]
  - Metabolic syndrome [Unknown]
  - Off label use [Unknown]
  - Exposure during pregnancy [Unknown]
  - Off label use [Unknown]
